FAERS Safety Report 5537063-6 (Version None)
Quarter: 2007Q4

REPORT INFORMATION
  Report Type: 
  Country: None (occurrence: None)
  Receive Date: 20071120
  Receipt Date: 20070823
  Transmission Date: 20080405
  Serious: Yes (Other)
  Sender: FDA-Public Use
  Company Number: 40185

PATIENT
  Age: 63 Year
  Sex: Female

DRUGS (1)
  1. METHOTREXATE [Suspect]
     Indication: RHEUMATOID ARTHRITIS
     Dosage: 10 MG SUBCUTANEOUSLY ONCE A W; STARTED BEDFORD BRAND WITHIN P
     Route: 058

REACTIONS (2)
  - BURNING SENSATION [None]
  - INJECTION SITE REACTION [None]
